FAERS Safety Report 9262979 (Version 1)
Quarter: 2013Q2

REPORT INFORMATION
  Report Type: Spontaneous
  Country: TR (occurrence: None)
  Receive Date: 20130426
  Receipt Date: 20130426
  Transmission Date: 20140414
  Serious: Yes (Hospitalization)
  Sender: FDA-Public Use
  Company Number: IMP_06679_2013

PATIENT
  Age: 30 Year
  Sex: Female

DRUGS (1)
  1. METFORMIN [Suspect]
     Indication: PRODUCT USED FOR UNKNOWN INDICATION

REACTIONS (21)
  - Intentional overdose [None]
  - Suicide attempt [None]
  - Memory impairment [None]
  - Vomiting [None]
  - Confusional state [None]
  - Agitation [None]
  - Hypotension [None]
  - Sinus bradycardia [None]
  - Respiratory rate increased [None]
  - Oxygen saturation decreased [None]
  - Body temperature decreased [None]
  - Coma scale abnormal [None]
  - Blood creatinine increased [None]
  - Blood potassium decreased [None]
  - Blood phosphorus increased [None]
  - Myoglobin blood increased [None]
  - Amylase increased [None]
  - White blood cell count increased [None]
  - Lactic acidosis [None]
  - Haemodialysis [None]
  - Toxicity to various agents [None]
